FAERS Safety Report 10208695 (Version 1)
Quarter: 2014Q2

REPORT INFORMATION
  Report Type: Spontaneous
  Country: US (occurrence: US)
  Receive Date: 20140530
  Receipt Date: 20140530
  Transmission Date: 20141212
  Serious: No
  Sender: FDA-Public Use
  Company Number: US-GILEAD-2014-0103610

PATIENT
  Sex: Male

DRUGS (3)
  1. SOVALDI [Suspect]
     Indication: HEPATITIS C
     Dosage: UNK
     Route: 065
     Dates: start: 201405
  2. RIBAVIRIN [Concomitant]
     Dosage: UNK
     Dates: start: 201405
  3. PEGINTERFERON ALFA [Concomitant]
     Dosage: UNK
     Dates: start: 201405

REACTIONS (5)
  - Pollakiuria [Unknown]
  - Hyperhidrosis [Unknown]
  - Headache [Unknown]
  - Musculoskeletal pain [Unknown]
  - Insomnia [Unknown]
